FAERS Safety Report 22006443 (Version 6)
Quarter: 2023Q2

REPORT INFORMATION
  Report Type: Spontaneous
  Country: ES (occurrence: ES)
  Receive Date: 20230217
  Receipt Date: 20230428
  Transmission Date: 20230722
  Serious: Yes (Other)
  Sender: FDA-Public Use
  Company Number: ES-BRISTOL-MYERS SQUIBB COMPANY-2023-023795

PATIENT
  Age: 55 Year
  Sex: Female
  Weight: 51 kg

DRUGS (2)
  1. IPILIMUMAB [Suspect]
     Active Substance: IPILIMUMAB
     Indication: Renal cancer stage IV
     Dosage: TOTAL DOSE 51MG, 0,047 MG/KG
     Route: 042
     Dates: start: 20220829, end: 20221028
  2. NIVOLUMAB [Suspect]
     Active Substance: NIVOLUMAB
     Indication: Renal cancer stage IV
     Dosage: TOTAL DOSE OF 150 MG
     Route: 042
     Dates: start: 20220829, end: 20221121

REACTIONS (3)
  - Off label use [Unknown]
  - Immune-mediated encephalitis [Recovered/Resolved]
  - Metastases to meninges [Recovered/Resolved]

NARRATIVE: CASE EVENT DATE: 20221122
